FAERS Safety Report 10971315 (Version 1)
Quarter: 2015Q1

REPORT INFORMATION
  Report Type: Spontaneous
  Country: CH (occurrence: CH)
  Receive Date: 20150331
  Receipt Date: 20150331
  Transmission Date: 20150721
  Serious: Yes (Hospitalization)
  Sender: FDA-Public Use
  Company Number: CH-TEVA-550496ISR

PATIENT
  Age: 58 Year
  Sex: Male

DRUGS (8)
  1. TRIOFAN [Suspect]
     Active Substance: XYLOMETAZOLINE
     Route: 045
     Dates: start: 20150128, end: 20150130
  2. OLFEN [Suspect]
     Active Substance: DICLOFENAC SODIUM
     Indication: OEDEMA MUCOSAL
     Dosage: 5 TABLETS AS NEEDED
     Route: 048
  3. MEBUCAINE F [Suspect]
     Active Substance: BENOXINATE HYDROCHLORIDE\CETYLPYRIDINIUM CHLORIDE\TYROTHRICIN
     Route: 048
     Dates: start: 20150128, end: 20150130
  4. SPIRICORT [Concomitant]
     Active Substance: PREDNISOLONE
     Route: 065
  5. CO-AMOXI-MEPHA 1000 LACTAB [Suspect]
     Active Substance: AMOXICILLIN\CLAVULANIC ACID
     Dosage: 2 DOSAGE FORMS DAILY; 1 DF = 875 MG AMOXICILLIN + 125 MG CLAVULANIC ACID
     Route: 048
     Dates: start: 20150131, end: 20150206
  6. VOLTAREN [Suspect]
     Active Substance: DICLOFENAC SODIUM
     Dosage: 112.5 MILLIGRAM DAILY;
     Route: 048
     Dates: start: 20150129, end: 20150131
  7. NEO CITRAN (SWITZERLAND) [Suspect]
     Active Substance: ACETAMINOPHEN\ASCORBIC ACID\PHENIRAMINE\PHENYLEPHRINE
     Dosage: 1 DOSAGE FORMS DAILY; 1 DF = 1 SACHET OF 580 MG
     Route: 048
     Dates: start: 20150129, end: 20150130
  8. NASENSPRAY NEO SPIRIG [Suspect]
     Active Substance: XYLOMETAZOLINE HYDROCHLORIDE
     Dosage: 3 DOSAGE FORMS DAILY; 1 DF = 1 PUFF
     Route: 045
     Dates: start: 20150201, end: 20150207

REACTIONS (10)
  - Blood bilirubin abnormal [Recovered/Resolved]
  - Weight decreased [Unknown]
  - Jaundice [Recovered/Resolved]
  - Blood alkaline phosphatase abnormal [Recovered/Resolved]
  - Faeces discoloured [Unknown]
  - Chromaturia [Unknown]
  - Malaise [Unknown]
  - Hepatitis cholestatic [Recovered/Resolved]
  - Transaminases increased [Recovered/Resolved]
  - Pruritus generalised [Recovered/Resolved]

NARRATIVE: CASE EVENT DATE: 201502
